FAERS Safety Report 10008931 (Version 1)
Quarter: 2014Q1

REPORT INFORMATION
  Report Type: Report from Study
  Country: US (occurrence: US)
  Receive Date: 20140313
  Receipt Date: 20140313
  Transmission Date: 20141002
  Serious: Yes (Death, Other)
  Sender: FDA-Public Use
  Company Number: US-ASTRAZENECA-2014SE16899

PATIENT
  Sex: Male

DRUGS (1)
  1. SYMBICORT [Suspect]
     Route: 055

REACTIONS (5)
  - Death [Fatal]
  - Neoplasm malignant [Unknown]
  - Metastases to central nervous system [Unknown]
  - Memory impairment [Unknown]
  - Emphysema [Unknown]
